FAERS Safety Report 10551165 (Version 2)
Quarter: 2014Q4

REPORT INFORMATION
  Report Type: Spontaneous
  Country: US (occurrence: US)
  Receive Date: 20141029
  Receipt Date: 20141029
  Transmission Date: 20150529
  Serious: No
  Sender: FDA-Public Use
  Company Number: US-LEO PHARMA-229008

PATIENT
  Sex: Female

DRUGS (1)
  1. PICATO [Suspect]
     Active Substance: INGENOL MEBUTATE
     Indication: ACTINIC KERATOSIS
     Dates: start: 20140703, end: 20140703

REACTIONS (12)
  - Product quality issue [Unknown]
  - Application site scab [Unknown]
  - Application site discharge [Unknown]
  - Dermatitis [Recovering/Resolving]
  - Inflammation [Recovering/Resolving]
  - Application site vesicles [Recovering/Resolving]
  - Incorrect drug administration duration [Unknown]
  - Hypokinesia [Recovering/Resolving]
  - Application site pruritus [Not Recovered/Not Resolved]
  - Insomnia [Recovering/Resolving]
  - Application site pain [Recovering/Resolving]
  - Application site erythema [Recovering/Resolving]
